FAERS Safety Report 4978326-2 (Version None)
Quarter: 2006Q2

REPORT INFORMATION
  Report Type: 
  Country: None (occurrence: None)
  Receive Date: 20060417
  Receipt Date: 20060330
  Transmission Date: 20061013
  Serious: Yes (Death, Life-Threatening)
  Sender: FDA-Public Use
  Company Number: DSA_27956_2006

PATIENT
  Sex: Female

DRUGS (2)
  1. CARDIZEM [Suspect]
     Dosage: 540 MG Q DAY PO
     Route: 048
  2. STATIN [Suspect]
     Dosage: DF

REACTIONS (2)
  - OVERDOSE [None]
  - PULMONARY OEDEMA [None]
